FAERS Safety Report 5988297-8 (Version None)
Quarter: 2008Q4

REPORT INFORMATION
  Report Type: 
  Country: None (occurrence: None)
  Receive Date: 20081204
  Receipt Date: 20081124
  Transmission Date: 20090506
  Serious: No
  Sender: FDA-Public Use
  Company Number: US025099

PATIENT
  Sex: Female

DRUGS (1)
  1. FENTORA [Suspect]
     Dosage: UNK BUCCAL
     Route: 002

REACTIONS (1)
  - DRUG DISPENSING ERROR [None]
